FAERS Safety Report 6278370-1 (Version None)
Quarter: 2009Q3

REPORT INFORMATION
  Report Type: 
  Country: None (occurrence: None)
  Receive Date: 20090722
  Receipt Date: 20090708
  Transmission Date: 20100115
  Serious: Yes (Other)
  Sender: FDA-Public Use
  Company Number: CH-PFIZER INC-2009237385

PATIENT

DRUGS (14)
  1. SOLU-MEDROL [Suspect]
     Indication: PROPHYLAXIS
     Dosage: 125 MG, CYCLIC
     Route: 064
     Dates: start: 20090113, end: 20090205
  2. CISPLATIN [Suspect]
     Indication: CERVIX CARCINOMA
     Dosage: 140 MG, CYCLIC
     Route: 064
     Dates: start: 20090113, end: 20090205
  3. PACLITAXEL [Suspect]
     Indication: CERVIX CARCINOMA
     Dosage: 340 MG, CYCLIC
     Route: 064
     Dates: start: 20090113, end: 20090205
  4. TAVEGYL [Suspect]
     Indication: PROPHYLAXIS
     Dosage: 2 MG, UNK
     Route: 064
     Dates: start: 20090113, end: 20090205
  5. ZOFRAN [Suspect]
     Indication: PROPHYLAXIS
     Dosage: 8 MG, CYCLIC
     Route: 064
     Dates: start: 20090113, end: 20090205
  6. RANITIDINE [Suspect]
     Indication: PROPHYLAXIS
     Dosage: 50 MG, CYCLIC
     Route: 064
     Dates: start: 20090113, end: 20090205
  7. DEXAMETHASONE [Suspect]
     Dosage: 20 MG, CYCLIC
     Route: 064
     Dates: start: 20090112, end: 20090205
  8. CELESTONE PHOSPHATE [Suspect]
     Dosage: 12 MG, 1X/DAY
     Route: 064
     Dates: start: 20090112, end: 20090113
  9. PRIMPERAN [Suspect]
     Indication: NAUSEA
     Dosage: 10 MG, 4X/DAY
     Route: 064
  10. PRIMPERAN [Suspect]
     Indication: VOMITING
  11. ZOFRAN [Suspect]
     Indication: NAUSEA
     Dosage: 8 MG, 1X/DAY
     Route: 064
  12. ZOFRAN [Suspect]
     Indication: VOMITING
  13. LASIX [Concomitant]
     Dosage: 20 MG, AS NEEDED
     Route: 064
  14. TEMESTA [Concomitant]
     Dosage: 1 MG, AS NEEDED
     Route: 064

REACTIONS (6)
  - DRUG EXPOSURE DURING PREGNANCY [None]
  - HYPOGLYCAEMIA NEONATAL [None]
  - HYPOTHERMIA [None]
  - JAUNDICE NEONATAL [None]
  - NEONATAL RESPIRATORY DISTRESS SYNDROME [None]
  - PREMATURE BABY [None]
